FAERS Safety Report 17650679 (Version 4)
Quarter: 2020Q3

REPORT INFORMATION
  Report Type: Report from Study
  Country: AU (occurrence: AU)
  Receive Date: 20200409
  Receipt Date: 20200710
  Transmission Date: 20201102
  Serious: Yes (Other)
  Sender: FDA-Public Use
  Company Number: AU-EMD SERONO-9151896

PATIENT
  Age: 45 Year
  Sex: Female

DRUGS (2)
  1. MAVENCLAD [Suspect]
     Active Substance: CLADRIBINE
     Dosage: YEAR TWO WEEK ONE THERAPY.
     Dates: start: 20200110
  2. MAVENCLAD [Suspect]
     Active Substance: CLADRIBINE
     Indication: MULTIPLE SCLEROSIS
     Dosage: YEAR ONE THERAPY.
     Dates: start: 20190101

REACTIONS (4)
  - Dermatitis [Recovered/Resolved]
  - Rash pruritic [Recovered/Resolved]
  - Skin ulcer [Unknown]
  - Influenza like illness [Unknown]

NARRATIVE: CASE EVENT DATE: 202003
